FAERS Safety Report 8429109-2 (Version None)
Quarter: 2012Q2

REPORT INFORMATION
  Report Type: 
  Country: None (occurrence: None)
  Receive Date: 20120612
  Receipt Date: 20120530
  Transmission Date: 20120825
  Serious: Yes (Other)
  Sender: FDA-Public Use
  Company Number: US-JNJFOC-20120601847

PATIENT
  Age: 28 Year
  Sex: Male

DRUGS (15)
  1. DIVALPROEX SODIUM [Suspect]
     Indication: INTERMITTENT EXPLOSIVE DISORDER
     Dosage: AT BED TIME
     Route: 065
  2. DIVALPROEX SODIUM [Suspect]
     Dosage: 500 MG IN THE MORNING AND 750 MG AT BEDTIME
     Route: 065
  3. DEXTROAMPHETAMINE [Suspect]
     Indication: ATTENTION DEFICIT/HYPERACTIVITY DISORDER
     Dosage: MORNING 8 AM, NOON 12 PM, AND EVENING 5 PM.
     Route: 065
  4. TOPIRAMATE [Suspect]
     Indication: COMPLEX PARTIAL SEIZURES
     Dosage: FOR 10 DAYS
     Route: 048
  5. TOPIRAMATE [Suspect]
     Dosage: FOR 5 DAYS
     Route: 048
     Dates: start: 20100801
  6. PROPRANOLOL [Suspect]
     Route: 065
  7. PROPRANOLOL [Suspect]
     Route: 065
  8. PROPRANOLOL [Suspect]
     Indication: ABNORMAL BEHAVIOUR
     Route: 065
  9. PROPRANOLOL [Suspect]
     Indication: HYPERTENSION
     Route: 065
  10. CLONIDINE [Suspect]
     Indication: HYPERTENSION
     Dosage: IN THE MORNING
     Route: 065
  11. LISINOPRIL [Suspect]
     Indication: BLOOD PRESSURE
     Dosage: RECOMMENDATIONS TO INCREASE THE DOSE AS NEEDED
     Route: 065
  12. TOPIRAMATE [Suspect]
     Dosage: TEMPORARILY WITHHELD FOR SHEDULED EEG
     Route: 048
  13. LISINOPRIL [Suspect]
     Route: 065
  14. TOPIRAMATE [Suspect]
     Route: 048
  15. TOPIRAMATE [Suspect]
     Route: 048

REACTIONS (2)
  - AGGRESSION [None]
  - DISSOCIATION [None]
